FAERS Safety Report 9485996 (Version 1)
Quarter: 2013Q3

REPORT INFORMATION
  Report Type: Spontaneous
  Country: US (occurrence: None)
  Receive Date: 20130823
  Receipt Date: 20130823
  Transmission Date: 20140515
  Serious: Yes (Death, Life-Threatening, Hospitalization)
  Sender: FDA-Public Use
  Company Number: 1713747-2013-99939

PATIENT
  Sex: 0

DRUGS (5)
  1. 0.9% SODIUM CHLORIDE INJECTION, USP IN MINI-BAG PLUS CONTAINER [Suspect]
     Route: 042
     Dates: start: 201307
  2. FRESENIUS COMBISET [Concomitant]
  3. FRESENIUS DIALYZER [Concomitant]
  4. FRESENIUS COLLECTIVE CONCENTRATE-NATURALYTE [Concomitant]
  5. FRESENISU 2008K HEMODIALYSIS MACHINE [Concomitant]

REACTIONS (1)
  - Death [None]
